FAERS Safety Report 16164252 (Version 1)
Quarter: 2019Q2

REPORT INFORMATION
  Report Type: Spontaneous
  Country: NL (occurrence: NL)
  Receive Date: 20190405
  Receipt Date: 20190405
  Transmission Date: 20190711
  Serious: No
  Sender: FDA-Public Use
  Company Number: NL-ELI_LILLY_AND_COMPANY-NL201903014435

PATIENT
  Sex: Female

DRUGS (2)
  1. ADCIRCA [Suspect]
     Active Substance: TADALAFIL
     Indication: PULMONARY ARTERIAL HYPERTENSION
     Dosage: 40 MG, DAILY
     Route: 065
     Dates: start: 20190225
  2. ADCIRCA [Suspect]
     Active Substance: TADALAFIL
     Dosage: 20 MG, UNKNOWN
     Route: 065
     Dates: end: 20190327

REACTIONS (9)
  - Swelling face [Unknown]
  - Intraocular pressure increased [Unknown]
  - Menorrhagia [Unknown]
  - Fatigue [Unknown]
  - Peripheral swelling [Unknown]
  - Eye swelling [Unknown]
  - Vision blurred [Unknown]
  - Hypoacusis [Recovering/Resolving]
  - Ocular hyperaemia [Recovering/Resolving]

NARRATIVE: CASE EVENT DATE: 201903
